FAERS Safety Report 24315448 (Version 2)
Quarter: 2024Q3

REPORT INFORMATION
  Report Type: Spontaneous
  Country: CH (occurrence: CH)
  Receive Date: 20240913
  Receipt Date: 20240928
  Transmission Date: 20241017
  Serious: Yes (Hospitalization, Other)
  Sender: AMGEN
  Company Number: CH-UCBSA-2024044500

PATIENT
  Age: 80 Year
  Sex: Female

DRUGS (2)
  1. EVENITY [Suspect]
     Active Substance: ROMOSOZUMAB-AQQG
     Indication: Osteoporosis
     Dosage: 105 MILLIGRAM, QD
     Route: 058
     Dates: start: 20240728, end: 20240728
  2. CALCIUM [Concomitant]
     Active Substance: CALCIUM
     Indication: Product used for unknown indication
     Dosage: UNK
     Route: 065

REACTIONS (1)
  - Eczema [Recovering/Resolving]

NARRATIVE: CASE EVENT DATE: 20240728
